FAERS Safety Report 22380914 (Version 2)
Quarter: 2023Q2

REPORT INFORMATION
  Report Type: Report from Study
  Country: US (occurrence: US)
  Receive Date: 20230530
  Receipt Date: 20230626
  Transmission Date: 20230722
  Serious: Yes (Other)
  Sender: FDA-Public Use
  Company Number: US-ABBVIE-5179637

PATIENT
  Age: 71 Year
  Sex: Male
  Weight: 70.306 kg

DRUGS (2)
  1. DUOPA [Suspect]
     Active Substance: CARBIDOPA\LEVODOPA
     Indication: Parkinson^s disease
     Route: 050
     Dates: start: 20220718
  2. DUOPA [Suspect]
     Active Substance: CARBIDOPA\LEVODOPA
     Indication: Parkinson^s disease

REACTIONS (14)
  - Dehydration [Recovering/Resolving]
  - Confusional state [Unknown]
  - Stoma site erythema [Not Recovered/Not Resolved]
  - Abdominal pain upper [Unknown]
  - Device leakage [Unknown]
  - Stoma site infection [Unknown]
  - Stoma site pain [Not Recovered/Not Resolved]
  - Stoma site discharge [Not Recovered/Not Resolved]
  - Urinary tract infection [Recovering/Resolving]
  - Erythema [Unknown]
  - Stoma site inflammation [Unknown]
  - Blood pressure increased [Unknown]
  - Dehydration [Unknown]
  - Stoma site pain [Unknown]

NARRATIVE: CASE EVENT DATE: 20230501
